FAERS Safety Report 14499279 (Version 1)
Quarter: 2018Q1

REPORT INFORMATION
  Report Type: Spontaneous
  Country: US (occurrence: US)
  Receive Date: 20180207
  Receipt Date: 20180207
  Transmission Date: 20180509
  Serious: No
  Sender: FDA-Public Use
  Company Number: US-JAZZ-2017-US-007257

PATIENT
  Age: 86 Year
  Sex: Male
  Weight: 80.73 kg

DRUGS (4)
  1. PRIALT [Suspect]
     Active Substance: ZICONOTIDE ACETATE
     Indication: BACK PAIN
  2. MORPHINE [Suspect]
     Active Substance: MORPHINE
     Indication: BACK PAIN
  3. PRIALT [Suspect]
     Active Substance: ZICONOTIDE ACETATE
     Indication: PAIN
     Dosage: .055?G, QH
     Route: 037
  4. MORPHINE [Suspect]
     Active Substance: MORPHINE
     Indication: PAIN
     Dosage: 0.055 MG, QH
     Route: 037

REACTIONS (2)
  - Hypoacusis [Not Recovered/Not Resolved]
  - Device issue [Unknown]

NARRATIVE: CASE EVENT DATE: 20170519
